FAERS Safety Report 7322887-5 (Version None)
Quarter: 2011Q1

REPORT INFORMATION
  Report Type: 
  Country: None (occurrence: None)
  Receive Date: 20110215
  Receipt Date: 20110204
  Transmission Date: 20110831
  Serious: Yes (Hospitalization)
  Sender: FDA-Public Use
  Company Number: CLOF-1000741

PATIENT
  Age: 60 Year
  Sex: Female

DRUGS (17)
  1. OXYCONTIN [Concomitant]
  2. HYDRALAZINE HCL [Concomitant]
  3. ANTIVIRALS NOS [Concomitant]
  4. NORVASC [Concomitant]
  5. CALCITRIOL [Concomitant]
  6. KAY CIEL DURA-TABS [Concomitant]
  7. ZOLOFT [Concomitant]
  8. LOPRESSOR [Concomitant]
  9. PROTONIX [Concomitant]
  10. ANTIFUNGALS [Concomitant]
  11. LIDODERM [Concomitant]
  12. EPOGEN [Concomitant]
  13. GLIPIZIDE [Concomitant]
  14. CLONIDINE [Concomitant]
  15. CLOLAR [Suspect]
     Indication: NON-HODGKIN'S LYMPHOMA REFRACTORY
     Dosage: QDX5 FOR 1 CYCLE, INTRAVENOUS
     Route: 042
  16. SENNA (SENNA ALEXANDRINA) [Concomitant]
  17. SYNTHROID [Concomitant]

REACTIONS (7)
  - PANCYTOPENIA [None]
  - DISSEMINATED INTRAVASCULAR COAGULATION [None]
  - UNRESPONSIVE TO STIMULI [None]
  - ELECTROLYTE IMBALANCE [None]
  - PYREXIA [None]
  - HYPOGLYCAEMIA [None]
  - BLOOD PRESSURE INCREASED [None]
